FAERS Safety Report 8189489-2 (Version None)
Quarter: 2012Q1

REPORT INFORMATION
  Report Type: 
  Country: None (occurrence: None)
  Receive Date: 20120302
  Receipt Date: 20120221
  Transmission Date: 20120608
  Serious: Yes (Hospitalization)
  Sender: FDA-Public Use
  Company Number: 2012SP009787

PATIENT
  Sex: Male

DRUGS (6)
  1. LEVOTHYROXINE SODIUM [Concomitant]
  2. INTRON A [Suspect]
     Indication: MALIGNANT MELANOMA
     Dosage: 40 MIU;IV, 30 MIU;IV, 20 MIU;UNK, 15 MIU;TIW, 10 MIU;TIW
     Dates: start: 20120213
  3. INTRON A [Suspect]
     Indication: MALIGNANT MELANOMA
     Dosage: 40 MIU;IV, 30 MIU;IV, 20 MIU;UNK, 15 MIU;TIW, 10 MIU;TIW
     Dates: start: 20111107
  4. INTRON A [Suspect]
     Indication: MALIGNANT MELANOMA
     Dosage: 40 MIU;IV, 30 MIU;IV, 20 MIU;UNK, 15 MIU;TIW, 10 MIU;TIW
     Dates: start: 20120113, end: 20120125
  5. INTRON A [Suspect]
     Indication: MALIGNANT MELANOMA
     Dosage: 40 MIU;IV, 30 MIU;IV, 20 MIU;UNK, 15 MIU;TIW, 10 MIU;TIW
     Dates: start: 20111117, end: 20111202
  6. INTRON A [Suspect]
     Indication: MALIGNANT MELANOMA
     Dosage: 40 MIU;IV, 30 MIU;IV, 20 MIU;UNK, 15 MIU;TIW, 10 MIU;TIW
     Dates: start: 20111205

REACTIONS (12)
  - RASH PRURITIC [None]
  - LIVER FUNCTION TEST ABNORMAL [None]
  - ASTHENIA [None]
  - THERMAL BURN [None]
  - NAUSEA [None]
  - RADIATION SKIN INJURY [None]
  - PAIN [None]
  - PYREXIA [None]
  - CHILLS [None]
  - FATIGUE [None]
  - INFECTION [None]
  - POST PROCEDURAL INFECTION [None]
